FAERS Safety Report 8180079 (Version 2)
Quarter: 2013Q1

REPORT INFORMATION
  Report Type: Report from Study
  Country: US (occurrence: US)
  Receive Date: 20111013
  Receipt Date: 20130208
  Transmission Date: 20140127
  Serious: Yes (Hospitalization)
  Sender: FDA-Public Use
  Company Number: US-AMGEN-USACT2011051808

PATIENT
  Age: 61 Year
  Sex: Female

DRUGS (3)
  1. DARBEPOETIN ALFA [Suspect]
     Indication: CARDIAC FAILURE
     Dosage: UNK UNK, Q2WK
     Route: 058
     Dates: start: 20070205
  2. LOSARTAN [Concomitant]
  3. INSULIN [Concomitant]
     Dosage: UNK
     Dates: end: 20110825

REACTIONS (1)
  - Renal failure [Recovering/Resolving]
